FAERS Safety Report 8441064-8 (Version None)
Quarter: 2012Q2

REPORT INFORMATION
  Report Type: 
  Country: None (occurrence: None)
  Receive Date: 20120615
  Receipt Date: 20110527
  Transmission Date: 20120825
  Serious: No
  Sender: FDA-Public Use
  Company Number: US-NOVEN-11US002524

PATIENT
  Sex: Male

DRUGS (3)
  1. DAYTRANA [Suspect]
     Dosage: 5 MG, QD
     Route: 062
     Dates: start: 20101201, end: 20110201
  2. DAYTRANA [Suspect]
     Indication: ATTENTION DEFICIT/HYPERACTIVITY DISORDER
     Dosage: 10 MG, QD
     Route: 062
     Dates: start: 20110201
  3. DAYTRANA [Suspect]
     Dosage: 10 MG, QD
     Route: 062
     Dates: start: 20100901, end: 20101201

REACTIONS (5)
  - ABDOMINAL PAIN UPPER [None]
  - DRUG PRESCRIBING ERROR [None]
  - EDUCATIONAL PROBLEM [None]
  - WRONG TECHNIQUE IN DRUG USAGE PROCESS [None]
  - DISTURBANCE IN ATTENTION [None]
